FAERS Safety Report 6489718-7 (Version None)
Quarter: 2009Q4

REPORT INFORMATION
  Report Type: 
  Country: None (occurrence: None)
  Receive Date: 20091207
  Receipt Date: 20091123
  Transmission Date: 20100525
  Serious: Yes (Other)
  Sender: FDA-Public Use
  Company Number: 1022556-2009-00244

PATIENT
  Sex: Male

DRUGS (1)
  1. ACT FLUORIDE RINSE CINNAMON 18 OZ [Suspect]
     Indication: DENTAL FLUORIDE THERAPY
     Dosage: 10 ML, QD, ORAL
     Route: 048

REACTIONS (2)
  - NAUSEA [None]
  - RENAL PAIN [None]
